FAERS Safety Report 5064750-9 (Version None)
Quarter: 2006Q3

REPORT INFORMATION
  Report Type: 
  Country: None (occurrence: None)
  Receive Date: 20060728
  Receipt Date: 20060615
  Transmission Date: 20061208
  Serious: Yes (Life-Threatening, Hospitalization)
  Sender: FDA-Public Use
  Company Number: US-NOVOPROD-254169

PATIENT
  Age: 77 Year
  Sex: Female
  Weight: 109 kg

DRUGS (4)
  1. NOVOLIN N INNOLET [Suspect]
     Indication: INSULIN-REQUIRING TYPE II DIABETES MELLITUS
     Dosage: 10 IU, QD
     Route: 058
     Dates: start: 20050101, end: 20060409
  2. NOVOLIN N INNOLET [Suspect]
     Dosage: 10 IU, QD
     Route: 048
     Dates: start: 20060411
  3. GLUCOPHAGE                         /00082701/ [Concomitant]
     Indication: INSULIN-REQUIRING TYPE II DIABETES MELLITUS
     Dosage: 1 TAB, QD
     Route: 048
     Dates: end: 20060409
  4. GLUCOPHAGE                         /00082701/ [Concomitant]
     Dosage: 1 TAB, QD
     Route: 048
     Dates: start: 20060411

REACTIONS (4)
  - ANKLE FRACTURE [None]
  - BLOOD GLUCOSE INCREASED [None]
  - LOSS OF CONSCIOUSNESS [None]
  - ROAD TRAFFIC ACCIDENT [None]
